FAERS Safety Report 6021612-8 (Version None)
Quarter: 2008Q4

REPORT INFORMATION
  Report Type: 
  Country: None (occurrence: None)
  Receive Date: 20081229
  Receipt Date: 20081217
  Transmission Date: 20090506
  Serious: Yes (Other)
  Sender: FDA-Public Use
  Company Number: DK-AVENTIS-200821487GDDC

PATIENT
  Age: 14 Year
  Sex: Female

DRUGS (2)
  1. MINIRIN [Suspect]
     Route: 060
     Dates: start: 20071213, end: 20080721
  2. SOMATROPIN [Concomitant]
     Indication: TURNER'S SYNDROME
     Route: 030
     Dates: start: 20060101

REACTIONS (2)
  - HEADACHE [None]
  - LOSS OF CONSCIOUSNESS [None]
